FAERS Safety Report 8312354-4 (Version None)
Quarter: 2012Q2

REPORT INFORMATION
  Report Type: 
  Country: None (occurrence: None)
  Receive Date: 20120425
  Receipt Date: 20120420
  Transmission Date: 20120825
  Serious: Yes (Hospitalization)
  Sender: FDA-Public Use
  Company Number: ES-AMGEN-ESPNI2012023078

PATIENT
  Age: 69 Year
  Sex: Male

DRUGS (2)
  1. FILGRASTIM [Suspect]
     Indication: MULTIPLE MYELOMA
     Dosage: UNK
  2. LENALIDOMIDE [Suspect]
     Dosage: 25 MG, UNK
     Route: 048
     Dates: start: 20120301

REACTIONS (3)
  - NEUTROPENIA [None]
  - RESPIRATORY TRACT INFECTION [None]
  - ANAEMIA [None]
